FAERS Safety Report 8736262 (Version 4)
Quarter: 2013Q1

REPORT INFORMATION
  Report Type: Spontaneous
  Country: US (occurrence: US)
  Receive Date: 20120822
  Receipt Date: 20130207
  Transmission Date: 20140127
  Serious: Yes (Other)
  Sender: FDA-Public Use
  Company Number: US-ASTRAZENECA-2012SE57703

PATIENT
  Age: 57 Year
  Sex: Female

DRUGS (20)
  1. NEXIUM [Suspect]
     Route: 048
  2. METOPROLOL SUCCINATE [Suspect]
     Route: 048
  3. CRESTOR [Suspect]
     Indication: BLOOD CHOLESTEROL INCREASED
     Route: 048
  4. DURAGESIC [Concomitant]
     Dosage: 50 MCG/HR PATCH
  5. DURAGESIC [Concomitant]
     Dosage: 75 MCG/HR PATCH
  6. MELOXICAM [Concomitant]
  7. TOPIRAMATE [Concomitant]
  8. ORPHENADRINE CITRATE [Concomitant]
  9. GABAPENTIN [Concomitant]
  10. CYMBALTA [Concomitant]
  11. SUCRALFATE [Concomitant]
  12. PROCHLORPERAZINE [Concomitant]
  13. TRAMADOL [Concomitant]
  14. SULFMETH/TRIMETOPRIM [Concomitant]
     Dosage: 800/160
  15. ACYCLOVIR [Concomitant]
  16. ONDANESTRON ODT [Concomitant]
  17. LORAZEPAM [Concomitant]
  18. FENOFIBRATE [Concomitant]
  19. SIMVASTATIN [Concomitant]
  20. SERTRALINE [Concomitant]

REACTIONS (3)
  - Gastric cancer [Unknown]
  - Neoplasm malignant [Unknown]
  - Blood cholesterol increased [Unknown]
